FAERS Safety Report 12223308 (Version 1)
Quarter: 2016Q1

REPORT INFORMATION
  Report Type: Spontaneous
  Country: FR (occurrence: FR)
  Receive Date: 20160330
  Receipt Date: 20160330
  Transmission Date: 20160526
  Serious: Yes (Hospitalization)
  Sender: FDA-Public Use
  Company Number: FR-SA-2016SA059114

PATIENT
  Age: 41 Year
  Sex: Male

DRUGS (15)
  1. AMAREL [Suspect]
     Active Substance: GLIMEPIRIDE
     Indication: DIABETES MELLITUS
     Route: 048
     Dates: end: 20160222
  2. DOCETAXEL. [Suspect]
     Active Substance: DOCETAXEL
     Indication: BREAST CANCER MALE
     Route: 042
     Dates: start: 20151202, end: 20160203
  3. PIVALONE [Concomitant]
     Active Substance: TIXOCORTOL PIVALATE
  4. TAHOR [Concomitant]
     Active Substance: ATORVASTATIN CALCIUM
  5. PARACETAMOL [Concomitant]
     Active Substance: ACETAMINOPHEN
  6. DESLORATADINE. [Concomitant]
     Active Substance: DESLORATADINE
  7. METHYLPREDNISOLONE. [Concomitant]
     Active Substance: METHYLPREDNISOLONE
     Route: 042
  8. LEVOTHYROX [Concomitant]
     Active Substance: LEVOTHYROXINE
  9. PREVISCAN [Concomitant]
     Active Substance: FLUINDIONE
  10. CARDENSIEL [Concomitant]
     Active Substance: BISOPROLOL FUMARATE
  11. ALLOPURINOL. [Suspect]
     Active Substance: ALLOPURINOL
     Route: 048
     Dates: end: 20160222
  12. CARDENSIEL [Concomitant]
     Active Substance: BISOPROLOL FUMARATE
  13. LASILIX [Suspect]
     Active Substance: FUROSEMIDE
     Indication: HYPERTENSION
     Route: 048
     Dates: end: 20160222
  14. METFORMIN [Suspect]
     Active Substance: METFORMIN HYDROCHLORIDE
     Indication: DIABETES MELLITUS
     Route: 048
     Dates: end: 20160222
  15. COVERSYL [Suspect]
     Active Substance: PERINDOPRIL
     Indication: HYPERTENSION
     Route: 048
     Dates: end: 20160222

REACTIONS (6)
  - Nausea [Unknown]
  - Vomiting [Recovering/Resolving]
  - Renal tubular necrosis [Recovering/Resolving]
  - Diarrhoea [Unknown]
  - Acute kidney injury [Recovering/Resolving]
  - Decreased appetite [Unknown]

NARRATIVE: CASE EVENT DATE: 20160222
